FAERS Safety Report 7246826-0 (Version None)
Quarter: 2011Q1

REPORT INFORMATION
  Report Type: 
  Country: None (occurrence: None)
  Receive Date: 20110127
  Receipt Date: 20101206
  Transmission Date: 20110831
  Serious: Yes (Death)
  Sender: FDA-Public Use
  Company Number: JP-BAYER-201012807BYL

PATIENT
  Sex: Male
  Weight: 57 kg

DRUGS (4)
  1. SORAFENIB (RAF KINASE INHIBITOR) [Suspect]
     Indication: RENAL CELL CARCINOMA
     Dosage: 400 MG, BID
     Dates: start: 20090825, end: 20091103
  2. MAGMITT [Concomitant]
     Indication: CONSTIPATION
     Dosage: 660 MG, TID
     Route: 048
     Dates: start: 20090915
  3. PURSENNID [Concomitant]
     Indication: CONSTIPATION
     Dosage: DAILY DOSE 2 DF
     Route: 048
     Dates: start: 20090915
  4. SUTENT [Concomitant]
     Indication: CHEMOTHERAPY
     Dosage: 2 DF, QD
     Route: 048
     Dates: start: 20090423, end: 20090628

REACTIONS (4)
  - HEPATIC FUNCTION ABNORMAL [None]
  - CEREBRAL INFARCTION [None]
  - RASH [None]
  - ALOPECIA [None]
